FAERS Safety Report 22195569 (Version 1)
Quarter: 2023Q2

REPORT INFORMATION
  Report Type: Spontaneous
  Country: RU (occurrence: None)
  Receive Date: 20230411
  Receipt Date: 20230411
  Transmission Date: 20230722
  Serious: Yes (Other)
  Sender: FDA-Public Use
  Company Number: RU-ROCHE-3325520

PATIENT
  Sex: Male

DRUGS (5)
  1. ATEZOLIZUMAB [Suspect]
     Active Substance: ATEZOLIZUMAB
     Indication: Lung neoplasm malignant
     Dosage: SUBSEQUENT DOSE ON 27/JUL/2021, 17/AUG/2021, 07/SEP/2021, 28/SEP/2021, 16/NOV/2021, 07/DEC/2021, 03/
     Route: 041
     Dates: start: 20210706
  2. PEMETREXED [Suspect]
     Active Substance: PEMETREXED
     Indication: Lung neoplasm malignant
     Dosage: CYCLE DURATION - 21 DAYS
     Route: 065
     Dates: start: 20190518, end: 20190904
  3. CISPLATIN [Suspect]
     Active Substance: CISPLATIN
     Indication: Lung neoplasm malignant
     Dosage: CYCLE DURATION - 21 DAYS
     Route: 065
     Dates: start: 20190518, end: 20190904
  4. DOCETAXEL [Suspect]
     Active Substance: DOCETAXEL
     Indication: Lung neoplasm malignant
     Dosage: PER OS FROM DAY 2 TO DAY 21
     Route: 065
     Dates: start: 202009, end: 202106
  5. NINTEDANIB [Suspect]
     Active Substance: NINTEDANIB
     Indication: Lung neoplasm malignant
     Dosage: PER OS FROM DAY 2 TO DAY 21
     Route: 048
     Dates: start: 202009, end: 202106

REACTIONS (8)
  - Pulmonary fibrosis [Unknown]
  - COVID-19 pneumonia [Unknown]
  - Spinal compression fracture [Unknown]
  - Rib fracture [Unknown]
  - Fracture displacement [Unknown]
  - Metastasis [Unknown]
  - Osteosclerosis [Unknown]
  - Off label use [Unknown]
